FAERS Safety Report 6863007-0 (Version None)
Quarter: 2010Q2

REPORT INFORMATION
  Report Type: 
  Country: None (occurrence: None)
  Receive Date: 20100528
  Receipt Date: 20100319
  Transmission Date: 20101027
  Serious: No
  Sender: FDA-Public Use
  Company Number: 009021

PATIENT
  Age: 54 Year
  Sex: Female
  Weight: 99.8 kg

DRUGS (3)
  1. LACOSAMIDE [Suspect]
     Indication: CONVULSION
     Dosage: 200 MG BID ORAL
     Route: 048
  2. LIPITOR [Concomitant]
  3. TRILEPTAL [Concomitant]

REACTIONS (1)
  - PARAESTHESIA [None]
